FAERS Safety Report 18024675 (Version 11)
Quarter: 2020Q4

REPORT INFORMATION
  Report Type: Spontaneous
  Country: US (occurrence: US)
  Receive Date: 20200714
  Receipt Date: 20201219
  Transmission Date: 20210113
  Serious: No
  Sender: FDA-Public Use
  Company Number: US-009507513-2007USA004335

PATIENT
  Age: 59 Year
  Sex: Male

DRUGS (5)
  1. PREGNYL [Suspect]
     Active Substance: CHORIOGONADOTROPIN ALFA
     Dosage: UNK
  2. PREGNYL [Suspect]
     Active Substance: CHORIOGONADOTROPIN ALFA
     Dosage: UNK
     Dates: end: 202006
  3. PREGNYL [Suspect]
     Active Substance: CHORIOGONADOTROPIN ALFA
     Dosage: UNK
  4. PREGNYL [Suspect]
     Active Substance: CHORIOGONADOTROPIN ALFA
     Indication: MUSCLE BUILDING THERAPY
     Dosage: UNK
     Dates: start: 20200423
  5. STERILE DILUENT (WATER) [Suspect]
     Active Substance: WATER
     Indication: MUSCLE BUILDING THERAPY
     Dosage: UNK

REACTIONS (14)
  - Thermal burn [Unknown]
  - Lethargy [Unknown]
  - Drug ineffective for unapproved indication [Unknown]
  - Product packaging quantity issue [Unknown]
  - Urticaria [Unknown]
  - Feeling abnormal [Unknown]
  - Joint swelling [Unknown]
  - Asthenia [Unknown]
  - Product dose omission issue [Unknown]
  - Erythema [Unknown]
  - Fatigue [Unknown]
  - Suspected product tampering [Unknown]
  - Rash [Unknown]
  - Scar [Unknown]

NARRATIVE: CASE EVENT DATE: 202008
